FAERS Safety Report 7215096-1 (Version None)
Quarter: 2011Q1

REPORT INFORMATION
  Report Type: 
  Country: None (occurrence: None)
  Receive Date: 20110107
  Receipt Date: 20100820
  Transmission Date: 20110831
  Serious: No
  Sender: FDA-Public Use
  Company Number: A0877001A

PATIENT
  Age: 59 Year
  Sex: Male

DRUGS (6)
  1. TOPROL-XL [Concomitant]
  2. ENALAPRIL [Concomitant]
  3. LANOXIN [Concomitant]
  4. LOVAZA [Suspect]
     Dosage: 4CAP PER DAY
     Route: 048
     Dates: start: 20100501, end: 20100806
  5. JANUVIA [Concomitant]
  6. METFORMIN [Concomitant]

REACTIONS (6)
  - NAUSEA [None]
  - DYSGEUSIA [None]
  - DIZZINESS [None]
  - URINE ODOUR ABNORMAL [None]
  - DRUG INEFFECTIVE FOR UNAPPROVED INDICATION [None]
  - LOW DENSITY LIPOPROTEIN INCREASED [None]
